FAERS Safety Report 6563799-4 (Version None)
Quarter: 2010Q1

REPORT INFORMATION
  Report Type: 
  Country: None (occurrence: None)
  Receive Date: 20100130
  Receipt Date: 20091229
  Transmission Date: 20100710
  Serious: No
  Sender: FDA-Public Use
  Company Number: US-ABBOTT-09P-163-0616766-00

PATIENT
  Sex: Female

DRUGS (2)
  1. HUMIRA [Suspect]
     Indication: CROHN'S DISEASE
     Dosage: DAY 1
     Dates: start: 20091029
  2. VITAMIN B-12 [Concomitant]
     Indication: HYPOVITAMINOSIS

REACTIONS (3)
  - CONTUSION [None]
  - HYPOAESTHESIA [None]
  - PARAESTHESIA [None]
